FAERS Safety Report 6351123-1 (Version None)
Quarter: 2009Q3

REPORT INFORMATION
  Report Type: 
  Country: None (occurrence: None)
  Receive Date: 20090912
  Receipt Date: 20090622
  Transmission Date: 20100115
  Serious: No
  Sender: FDA-Public Use
  Company Number: US-ABBOTT-07P-163-0374927-00

PATIENT
  Sex: Female
  Weight: 61.29 kg

DRUGS (7)
  1. HUMIRA [Suspect]
     Indication: RHEUMATOID ARTHRITIS
     Route: 058
     Dates: start: 20031201, end: 20060801
  2. HUMIRA [Suspect]
     Route: 058
     Dates: start: 20060801
  3. INEGY [Concomitant]
     Indication: BLOOD CHOLESTEROL
     Dosage: 10/40 MILLIGRAM
     Route: 048
  4. METOPROLOL SUCCINATE [Concomitant]
     Indication: HYPERTENSION
     Route: 048
  5. TRAMADOL HCL [Concomitant]
     Indication: FIBROMYALGIA
     Route: 048
  6. LANSOPRAZOLE [Concomitant]
     Indication: GASTROOESOPHAGEAL REFLUX DISEASE
     Route: 048
  7. DYAZIDE [Concomitant]
     Indication: DIURETIC THERAPY
     Dosage: .5/25 MILLIGRAM

REACTIONS (2)
  - INCORRECT DOSE ADMINISTERED [None]
  - INJECTION SITE PAIN [None]
